FAERS Safety Report 9552090 (Version 1)
Quarter: 2013Q3

REPORT INFORMATION
  Report Type: Spontaneous
  Country: US (occurrence: None)
  Receive Date: 20130923
  Receipt Date: 20130923
  Transmission Date: 20140515
  Serious: Yes (Death, Hospitalization)
  Sender: FDA-Public Use
  Company Number: None

PATIENT
  Age: 59 Year
  Sex: Female
  Weight: 128.6 kg

DRUGS (2)
  1. CYCLOPHOSPHAMIDE [Suspect]
  2. DOXORUBICIN HYDROCHLORIDE [Suspect]

REACTIONS (10)
  - Disorientation [None]
  - Hypoxia [None]
  - Treatment noncompliance [None]
  - Dyspnoea [None]
  - Pulmonary embolism [None]
  - International normalised ratio decreased [None]
  - Tricuspid valve incompetence [None]
  - Pulmonary hypertension [None]
  - Stenotrophomonas test positive [None]
  - Skin ulcer [None]
